FAERS Safety Report 20642365 (Version 5)
Quarter: 2022Q2

REPORT INFORMATION
  Report Type: Spontaneous
  Country: US (occurrence: US)
  Receive Date: 20220328
  Receipt Date: 20220629
  Transmission Date: 20220721
  Serious: Yes (Other)
  Sender: FDA-Public Use
  Company Number: US-Rhythm Pharmaceuticals, Inc.-2022RHM000019

PATIENT
  Age: 6 Year
  Sex: Male
  Weight: 102.9 kg

DRUGS (11)
  1. IMCIVREE [Suspect]
     Active Substance: SETMELANOTIDE
     Indication: Off label use
     Dosage: 2 MG (0.2 ML)
     Route: 058
     Dates: start: 20220317, end: 20220318
  2. IMCIVREE [Suspect]
     Active Substance: SETMELANOTIDE
     Dosage: 1 MG (0.1 ML)
     Route: 058
     Dates: start: 20220317
  3. IMCIVREE [Suspect]
     Active Substance: SETMELANOTIDE
     Dosage: 1 MG (0.1 ML)
     Route: 058
     Dates: start: 20220502
  4. MELATONIN [Concomitant]
     Active Substance: MELATONIN
     Indication: Product used for unknown indication
     Route: 065
  5. MIRTAZAPINE [Concomitant]
     Active Substance: MIRTAZAPINE
     Indication: Anxiety
     Route: 065
  6. PROPRANOLOL [Concomitant]
     Active Substance: PROPRANOLOL HYDROCHLORIDE
     Indication: Product used for unknown indication
     Route: 065
  7. UNSPECIFIED INGREDIENT [Concomitant]
     Active Substance: UNSPECIFIED INGREDIENT
     Indication: Product used for unknown indication
  8. REMERON [Concomitant]
     Active Substance: MIRTAZAPINE
     Indication: Product used for unknown indication
     Route: 065
  9. ABILIFY [Concomitant]
     Active Substance: ARIPIPRAZOLE
     Indication: Product used for unknown indication
     Route: 065
     Dates: end: 202202
  10. ALBUTEROL [Concomitant]
     Active Substance: ALBUTEROL
     Indication: Product used for unknown indication
     Route: 065
  11. FLUOXETINE [Concomitant]
     Active Substance: FLUOXETINE HYDROCHLORIDE
     Indication: Product used for unknown indication
     Route: 065

REACTIONS (9)
  - Intentional self-injury [Recovered/Resolved]
  - Tension [Recovered/Resolved]
  - Agitation [Unknown]
  - Off label use [Unknown]
  - Ear infection [Not Recovered/Not Resolved]
  - Abdominal discomfort [Recovering/Resolving]
  - Insomnia [Recovered/Resolved]
  - Skin discolouration [Not Recovered/Not Resolved]
  - Nausea [Recovering/Resolving]

NARRATIVE: CASE EVENT DATE: 20220301
